FAERS Safety Report 10389821 (Version 2)
Quarter: 2014Q3

REPORT INFORMATION
  Report Type: Spontaneous
  Country: IN (occurrence: None)
  Receive Date: 20140813
  Receipt Date: 20140828
  Transmission Date: 20150326
  Serious: Yes (Other)
  Sender: FDA-Public Use
  Company Number: AUR-APL-2014-08569

PATIENT
  Age: 11 Year
  Sex: Male

DRUGS (2)
  1. LEVETIRACTAM [Suspect]
     Active Substance: LEVETIRACETAM
     Indication: CONVULSION
  2. SODIUM VALPROATE (VALPROATE SODIUM) [Concomitant]
     Active Substance: VALPROATE SODIUM

REACTIONS (5)
  - Erythema [None]
  - Rash [None]
  - Pruritus generalised [None]
  - Urticaria [None]
  - Hypersensitivity vasculitis [None]
